FAERS Safety Report 25278613 (Version 1)
Quarter: 2025Q2

REPORT INFORMATION
  Report Type: Spontaneous
  Country: US (occurrence: US)
  Receive Date: 20250507
  Receipt Date: 20250507
  Transmission Date: 20250716
  Serious: Yes (Other)
  Sender: ROCHE
  Company Number: US-ROCHE-10000273641

PATIENT
  Age: 9 Year
  Sex: Female
  Weight: 20.0 kg

DRUGS (5)
  1. RITUXIMAB [Suspect]
     Active Substance: RITUXIMAB
     Indication: Chronic graft versus host disease in skin
     Route: 065
  2. JAKAFI [Suspect]
     Active Substance: RUXOLITINIB
     Indication: Chronic graft versus host disease
     Route: 065
  3. SIROLIMUS [Suspect]
     Active Substance: SIROLIMUS
     Indication: Chronic graft versus host disease in skin
     Route: 065
  4. BELUMOSUDIL [Concomitant]
     Active Substance: BELUMOSUDIL
  5. HUMAN HEMATOPOIETIC PROGENITOR CELLS [Concomitant]
     Active Substance: HUMAN HEMATOPOIETIC PROGENITOR CELLS

REACTIONS (5)
  - Chronic graft versus host disease [Unknown]
  - Pseudomonas infection [Unknown]
  - Gait inability [Unknown]
  - Infection [Unknown]
  - Off label use [Unknown]
